FAERS Safety Report 23353637 (Version 2)
Quarter: 2025Q1

REPORT INFORMATION
  Report Type: Spontaneous
  Country: US (occurrence: US)
  Receive Date: 20240101
  Receipt Date: 20250127
  Transmission Date: 20250409
  Serious: No
  Sender: SANOFI AVENTIS
  Company Number: US-SA-SAC20231226000216

PATIENT
  Age: 40 Year
  Sex: Female

DRUGS (2)
  1. DUPIXENT [Suspect]
     Active Substance: DUPILUMAB
     Indication: Eosinophilic oesophagitis
     Dosage: 300 MG, QW
     Route: 058
     Dates: start: 202308
  2. DUPIXENT [Suspect]
     Active Substance: DUPILUMAB
     Dosage: 300 MG, QOW
     Route: 058

REACTIONS (2)
  - Illness [Recovering/Resolving]
  - Intentional dose omission [Unknown]

NARRATIVE: CASE EVENT DATE: 20230101
